FAERS Safety Report 9145443 (Version 1)
Quarter: 2013Q1

REPORT INFORMATION
  Report Type: Spontaneous
  Country: US (occurrence: None)
  Receive Date: 20130226
  Receipt Date: 20130226
  Transmission Date: 20140127
  Serious: Yes (Disabling)
  Sender: FDA-Public Use
  Company Number: None

PATIENT
  Age: 63 Year
  Sex: Female
  Weight: 106.6 kg

DRUGS (1)
  1. SULFAMETHOXAZOLE + TRIMETHOPRIM [Suspect]
     Indication: STAPHYLOCOCCAL INFECTION
     Dosage: 1 2 PO
     Route: 048
     Dates: start: 20130218, end: 20130221

REACTIONS (8)
  - Nausea [None]
  - Vomiting [None]
  - Rash [None]
  - Pruritus [None]
  - Pain in extremity [None]
  - Back pain [None]
  - Asthenia [None]
  - Ageusia [None]
